FAERS Safety Report 9202330 (Version 2)
Quarter: 2013Q2

REPORT INFORMATION
  Report Type: Spontaneous
  Country: US (occurrence: US)
  Receive Date: 20130401
  Receipt Date: 20130415
  Transmission Date: 20140414
  Serious: Yes (Hospitalization)
  Sender: FDA-Public Use
  Company Number: US-BRISTOL-MYERS SQUIBB COMPANY-18707513

PATIENT
  Age: 55 Year
  Sex: Male
  Weight: 92.97 kg

DRUGS (1)
  1. ORENCIA [Suspect]
     Indication: RHEUMATOID ARTHRITIS
     Dosage: LAST INF: 14MAR2013
     Route: 042

REACTIONS (2)
  - Hip fracture [Recovered/Resolved]
  - Impaired healing [Recovering/Resolving]
